FAERS Safety Report 8618686-4 (Version None)
Quarter: 2012Q3

REPORT INFORMATION
  Report Type: 
  Country: None (occurrence: None)
  Receive Date: 20120814
  Receipt Date: 20120814
  Transmission Date: 20120928
  Serious: No
  Sender: FDA-Public Use
  Company Number: None

PATIENT
  Age: 73 Year
  Sex: Female
  Weight: 56.6996 kg

DRUGS (1)
  1. HUMULIN 70/30 [Suspect]
     Dosage: INJECT 25 UNITS UNDER THE SKIN IN THE MORNING AND 22 UNITS IN THE EVENING

REACTIONS (1)
  - DRUG INEFFECTIVE [None]
